FAERS Safety Report 17295581 (Version 2)
Quarter: 2020Q1

REPORT INFORMATION
  Report Type: Spontaneous
  Country: US (occurrence: US)
  Receive Date: 20200121
  Receipt Date: 20200128
  Transmission Date: 20200409
  Serious: Yes (Other)
  Sender: FDA-Public Use
  Company Number: US-PFIZER INC-2020026653

PATIENT

DRUGS (2)
  1. BUPIVACAINE HCL [Suspect]
     Active Substance: BUPIVACAINE HYDROCHLORIDE
     Indication: SPINAL ANAESTHESIA
     Dosage: UNK (BUPIVICAINE SPINAL 0.75% IN DEXTROSE 8.25%)
     Route: 008
  2. BUPIVACAINE HCL [Suspect]
     Active Substance: BUPIVACAINE HYDROCHLORIDE
     Indication: EPIDURAL ANAESTHESIA

REACTIONS (4)
  - Drug ineffective [Unknown]
  - Product quality issue [Unknown]
  - Product administration error [Unknown]
  - Poor quality product administered [Unknown]
